FAERS Safety Report 5032814-1 (Version None)
Quarter: 2006Q2

REPORT INFORMATION
  Report Type: 
  Country: None (occurrence: None)
  Receive Date: 20060620
  Receipt Date: 20060524
  Transmission Date: 20061013
  Serious: No
  Sender: FDA-Public Use
  Company Number: 2477

PATIENT
  Sex: 0

DRUGS (1)
  1. AMNESTEEM [Suspect]
     Indication: ACNE
     Dosage: 40 MG, BID PO
     Route: 048
     Dates: start: 20060201, end: 20060501

REACTIONS (2)
  - ACNE [None]
  - CONDITION AGGRAVATED [None]
